FAERS Safety Report 17532288 (Version 1)
Quarter: 2020Q1

REPORT INFORMATION
  Report Type: Spontaneous
  Country: US (occurrence: US)
  Receive Date: 20200311
  Receipt Date: 20200311
  Transmission Date: 20200409
  Serious: Yes (Death, Other)
  Sender: FDA-Public Use
  Company Number: US-BAXTER-2020BAX005238

PATIENT
  Sex: Male

DRUGS (3)
  1. FLUCONAZOLE INJECTION,USP (IN 0.9% SODIUM CHLORIDE INJECTION) [Suspect]
     Active Substance: FLUCONAZOLE
     Indication: PRODUCT USED FOR UNKNOWN INDICATION
     Route: 065
  2. BIVALIRUDIN IN 0.9% SODIUM CHLORIDE INJECTION [Suspect]
     Active Substance: BIVALIRUDIN
     Indication: PRODUCT USED FOR UNKNOWN INDICATION
     Route: 065
  3. HEPARIN SODIUM. [Suspect]
     Active Substance: HEPARIN SODIUM
     Indication: PRODUCT USED FOR UNKNOWN INDICATION
     Route: 065

REACTIONS (5)
  - Renal failure [Unknown]
  - Chylothorax [Unknown]
  - Ascites [Unknown]
  - Electrolyte imbalance [Unknown]
  - Klebsiella sepsis [Fatal]
